FAERS Safety Report 4489017-9 (Version None)
Quarter: 2004Q4

REPORT INFORMATION
  Report Type: 
  Country: None (occurrence: None)
  Receive Date: 20041029
  Receipt Date: 20040316
  Transmission Date: 20050328
  Serious: Yes (Death, Hospitalization)
  Sender: FDA-Public Use
  Company Number: GB-MERCK-0403GBR00186

PATIENT
  Age: 64 Year
  Sex: Female

DRUGS (18)
  1. ZOCOR [Suspect]
     Route: 048
     Dates: start: 20020601, end: 20021101
  2. PREDNISOLONE [Concomitant]
     Route: 065
  3. METOCLOPRAMIDE [Concomitant]
     Route: 048
  4. CHOLECALCIFEROL [Concomitant]
     Route: 065
  5. CALCIUM CARBONATE [Concomitant]
     Route: 065
  6. ESTRADIOL AND NORETHINDRONE ACETATE [Concomitant]
     Route: 065
  7. FOSAMAX [Concomitant]
     Route: 048
  8. FLUDROCORTISONE [Concomitant]
     Route: 065
  9. FOLIC ACID [Concomitant]
     Route: 065
  10. WARFARIN SODIUM [Concomitant]
     Route: 065
  11. CODEINE PHOSPHATE [Concomitant]
     Route: 065
  12. LANSOPRAZOLE [Concomitant]
     Route: 065
     Dates: start: 20020501
  13. LACTULOSE [Concomitant]
     Route: 065
  14. ASPIRIN [Concomitant]
     Route: 065
  15. NITROGLYCERIN [Concomitant]
     Route: 065
  16. SENNA [Concomitant]
     Route: 065
  17. CARBOXYMETHYLCELLULOSE SODIUM AND ELECTROLYTES (UNSPECIFIED) AND SORBI [Concomitant]
     Route: 048
  18. NUTRITIONAL SUPPLEMENTS [Concomitant]
     Route: 065

REACTIONS (3)
  - BRONCHOPNEUMONIA [None]
  - MYALGIA [None]
  - PULMONARY FIBROSIS [None]
